FAERS Safety Report 12951739 (Version 2)
Quarter: 2016Q4

REPORT INFORMATION
  Report Type: Spontaneous
  Country: US (occurrence: US)
  Receive Date: 20161117
  Receipt Date: 20161221
  Transmission Date: 20170207
  Serious: Yes (Hospitalization)
  Sender: FDA-Public Use
  Company Number: US-NOVOPROD-510676

PATIENT
  Age: 44 Year
  Sex: Female

DRUGS (5)
  1. METFORMIN [Concomitant]
     Active Substance: METFORMIN HYDROCHLORIDE
     Indication: TYPE 2 DIABETES MELLITUS
     Dosage: 1000 MG, BID (MORNING AND BEDTIME)
     Route: 048
  2. NOVOLOG [Suspect]
     Active Substance: INSULIN ASPART
     Indication: TYPE 2 DIABETES MELLITUS
     Dosage: 30-40 UNITS WITH EACH MEAL
     Route: 058
     Dates: start: 2013
  3. NOVOLOG [Suspect]
     Active Substance: INSULIN ASPART
     Dosage: 30-40 UNITS WITH EACH MEAL
     Route: 058
     Dates: start: 2013
  4. LEVEMIR [Suspect]
     Active Substance: INSULIN DETEMIR
     Indication: TYPE 2 DIABETES MELLITUS
     Dosage: 50 UNITS QD AT HS
     Route: 058
     Dates: start: 2013
  5. LEVEMIR [Suspect]
     Active Substance: INSULIN DETEMIR
     Dosage: 125 UNITS QD AT HS
     Route: 058

REACTIONS (1)
  - Blood glucose increased [Not Recovered/Not Resolved]

NARRATIVE: CASE EVENT DATE: 201608
